FAERS Safety Report 10212927 (Version 1)
Quarter: 2014Q2

REPORT INFORMATION
  Report Type: Spontaneous
  Country: US (occurrence: US)
  Receive Date: 20140602
  Receipt Date: 20140602
  Transmission Date: 20141212
  Serious: No
  Sender: FDA-Public Use
  Company Number: US-009507513-1405USA013355

PATIENT
  Age: 81 Year
  Sex: Male

DRUGS (2)
  1. FOSAMAX [Suspect]
     Indication: BONE DISORDER
     Dosage: UNK, QW
     Route: 048
     Dates: start: 201005
  2. FOSAMAX [Suspect]
     Dosage: UNK
     Route: 048

REACTIONS (3)
  - Diarrhoea [Unknown]
  - Diverticulum [Unknown]
  - Drug dose omission [Unknown]
